FAERS Safety Report 7719638-9 (Version None)
Quarter: 2011Q3

REPORT INFORMATION
  Report Type: 
  Country: None (occurrence: None)
  Receive Date: 20110830
  Receipt Date: 20110829
  Transmission Date: 20111222
  Serious: Yes (Death, Other)
  Sender: FDA-Public Use
  Company Number: US-B.I. PHARMACEUTICALS,INC./RIDGEFIELD-2011-BP-09885BP

PATIENT
  Sex: Male

DRUGS (4)
  1. PRADAXA [Suspect]
     Dates: start: 20101105
  2. MULTAQ [Concomitant]
     Dosage: 800 MG
     Dates: start: 20101101, end: 20101208
  3. TENORMIN [Concomitant]
  4. FLECAINIDE ACETATE [Concomitant]
     Dosage: 300 MG
     Dates: start: 20101210

REACTIONS (1)
  - EMBOLIC STROKE [None]
